FAERS Safety Report 7564900-6 (Version None)
Quarter: 2011Q2

REPORT INFORMATION
  Report Type: 
  Country: None (occurrence: None)
  Receive Date: 20110622
  Receipt Date: 20110204
  Transmission Date: 20111010
  Serious: Yes (Other)
  Sender: FDA-Public Use
  Company Number: US-MYLANLABS-2011S1002657

PATIENT
  Age: 32 Year
  Sex: Male

DRUGS (7)
  1. HALDOL [Concomitant]
  2. BENZTROPINE MESYLATE [Concomitant]
  3. CHLORPROMAZINE [Concomitant]
     Route: 048
  4. HALDOL [Concomitant]
  5. SEROQUEL [Concomitant]
     Route: 048
  6. CLOZAPINE [Suspect]
     Route: 048
     Dates: start: 20100701, end: 20110203
  7. SEROQUEL [Concomitant]
     Route: 048

REACTIONS (1)
  - GRANULOCYTOPENIA [None]
